FAERS Safety Report 13418030 (Version 1)
Quarter: 2017Q2

REPORT INFORMATION
  Report Type: Spontaneous
  Country: US (occurrence: US)
  Receive Date: 20170407
  Receipt Date: 20170407
  Transmission Date: 20170830
  Serious: Yes (Other)
  Sender: FDA-Public Use
  Company Number: US-BAUSCH-BL-2017-008523

PATIENT
  Age: 14 Year
  Sex: Male

DRUGS (2)
  1. PREDNISOLONE TAPER [Concomitant]
     Indication: COLITIS ULCERATIVE
     Route: 048
  2. APRISO [Suspect]
     Active Substance: MESALAMINE
     Indication: COLITIS ULCERATIVE
     Route: 048
     Dates: start: 20170330, end: 20170331

REACTIONS (4)
  - Diarrhoea haemorrhagic [Recovered/Resolved]
  - Nausea [Not Recovered/Not Resolved]
  - Abdominal pain [Recovered/Resolved]
  - Vomiting [Recovered/Resolved]

NARRATIVE: CASE EVENT DATE: 20170331
